FAERS Safety Report 14714925 (Version 1)
Quarter: 2018Q2

REPORT INFORMATION
  Report Type: Spontaneous
  Country: ZA (occurrence: ZA)
  Receive Date: 20180404
  Receipt Date: 20180404
  Transmission Date: 20180711
  Serious: Yes (Hospitalization)
  Sender: FDA-Public Use
  Company Number: ZA-PFIZER INC-2018137235

PATIENT
  Age: 79 Year
  Sex: Female

DRUGS (11)
  1. ASACOL [Suspect]
     Active Substance: MESALAMINE
     Dosage: 400 MG, UNK
  2. PURESIS [Suspect]
     Active Substance: FUROSEMIDE
     Dosage: 40 MG, UNK
  3. SALAZOPYRIN [Suspect]
     Active Substance: SULFASALAZINE
     Dosage: 500 MG, UNK
  4. SYMBICORD [Suspect]
     Active Substance: BUDESONIDE\FORMOTEROL
     Dosage: 160 UG, UNK
  5. CALCIFEROL [Suspect]
     Active Substance: ERGOCALCIFEROL
     Dosage: 50000 IU, UNK
  6. ASPEN WARFARIN [Suspect]
     Active Substance: WARFARIN
     Dosage: 5 MG, UNK
  7. CLOPIWIN [Suspect]
     Active Substance: CLOPIDOGREL BISULFATE
     Dosage: 75 MG, UNK
  8. NEULIN /00012201/ [Suspect]
     Active Substance: THEOPHYLLINE
     Dosage: 250 MG, UNK
  9. ELTROXIN [Suspect]
     Active Substance: LEVOTHYROXINE
     Dosage: 50 UG, UNK
  10. SOTAHEXAL [Suspect]
     Active Substance: SOTALOL
     Dosage: 80 MG, UNK
  11. DUOVENT [Suspect]
     Active Substance: FENOTEROL HYDROBROMIDE
     Dosage: 20/50MG

REACTIONS (2)
  - Rib fracture [Unknown]
  - Fall [Unknown]
